FAERS Safety Report 6755001-5 (Version None)
Quarter: 2010Q2

REPORT INFORMATION
  Report Type: 
  Country: None (occurrence: None)
  Receive Date: 20100602
  Receipt Date: 20100528
  Transmission Date: 20101027
  Serious: Yes (Hospitalization)
  Sender: FDA-Public Use
  Company Number: 011998

PATIENT
  Age: 43 Year
  Sex: Female

DRUGS (3)
  1. LACOSAMIDE [Suspect]
     Indication: CONVULSION
     Dosage: 100 MG BID INTRAVENOUS
     Route: 042
     Dates: start: 20100501, end: 20100501
  2. PHENOBARBITAL [Concomitant]
  3. DEPAKENE [Concomitant]

REACTIONS (1)
  - LIVING IN RESIDENTIAL INSTITUTION [None]
